FAERS Safety Report 5912081-4 (Version None)
Quarter: 2008Q4

REPORT INFORMATION
  Report Type: 
  Country: None (occurrence: None)
  Receive Date: 20081006
  Receipt Date: 20081006
  Transmission Date: 20090506
  Serious: Yes (Other)
  Sender: FDA-Public Use
  Company Number: None

PATIENT
  Age: 60 Year
  Sex: Female
  Weight: 53.5244 kg

DRUGS (1)
  1. TERBINAFINE 250MG PALHEON WHITBY [Suspect]
     Indication: NAIL BED INFECTION FUNGAL
     Dosage: 1 TABLET PER DAY
     Dates: start: 20080905, end: 20081001

REACTIONS (4)
  - AGEUSIA [None]
  - DYSGEUSIA [None]
  - HYPOPHAGIA [None]
  - WEIGHT DECREASED [None]
